FAERS Safety Report 18917531 (Version 1)
Quarter: 2021Q1

REPORT INFORMATION
  Report Type: Spontaneous
  Country: US (occurrence: US)
  Receive Date: 20210219
  Receipt Date: 20210219
  Transmission Date: 20210420
  Serious: No
  Sender: FDA-Public Use
  Company Number: US-PERRIGO-20US015266

PATIENT
  Sex: Female
  Weight: 63.49 kg

DRUGS (4)
  1. LOPERAMIDE HYDROCHLORIDE. [Suspect]
     Active Substance: LOPERAMIDE HYDROCHLORIDE
     Indication: BOWEL MOVEMENT IRREGULARITY
     Dosage: TOTAL OF 24 TO 30 MG, QD
     Route: 048
     Dates: start: 2018, end: 2018
  2. ADVIL [Concomitant]
     Active Substance: IBUPROFEN
     Indication: HEADACHE
     Dosage: UNK
     Route: 065
  3. GERITOL                            /07504101/ [Concomitant]
     Indication: SUPPLEMENTATION THERAPY
     Dosage: PRN
     Route: 065
  4. LOPERAMIDE HYDROCHLORIDE. [Suspect]
     Active Substance: LOPERAMIDE HYDROCHLORIDE
     Dosage: 8 MG, BID
     Route: 048
     Dates: start: 2018

REACTIONS (4)
  - Lip dry [Recovering/Resolving]
  - Incorrect product administration duration [Unknown]
  - Off label use [Unknown]
  - Overdose [Unknown]

NARRATIVE: CASE EVENT DATE: 2018
